FAERS Safety Report 9800643 (Version 3)
Quarter: 2014Q1

REPORT INFORMATION
  Report Type: Spontaneous
  Country: DE (occurrence: DE)
  Receive Date: 20140107
  Receipt Date: 20140109
  Transmission Date: 20141002
  Serious: Yes (Other)
  Sender: FDA-Public Use
  Company Number: DE-ROCHE-1234182

PATIENT
  Age: 79 Year
  Sex: Female
  Weight: 64 kg

DRUGS (9)
  1. BONVIVA [Suspect]
     Indication: OSTEOPOROSIS
     Route: 042
     Dates: start: 20120124
  2. BONVIVA [Suspect]
     Route: 042
     Dates: start: 20120418
  3. BONVIVA [Suspect]
     Route: 042
     Dates: start: 20120711
  4. BONVIVA [Suspect]
     Route: 042
     Dates: start: 20121126, end: 20130605
  5. ASS100 [Concomitant]
     Route: 048
  6. NEBIVOLOL [Concomitant]
     Indication: HYPERTENSION
     Route: 048
  7. RESTEX [Concomitant]
  8. SIMVASTATIN [Concomitant]
     Indication: RESTLESS LEGS SYNDROME
     Route: 048
  9. KINZALKOMB [Concomitant]
     Indication: HYPERTENSION
     Route: 048

REACTIONS (4)
  - Local swelling [Recovering/Resolving]
  - Erythema [Recovering/Resolving]
  - Induration [Recovering/Resolving]
  - Wrong technique in drug usage process [Unknown]
